FAERS Safety Report 21547308 (Version 1)
Quarter: 2022Q4

REPORT INFORMATION
  Report Type: Spontaneous
  Country: IN (occurrence: IN)
  Receive Date: 20221103
  Receipt Date: 20221103
  Transmission Date: 20230113
  Serious: Yes (Other)
  Sender: FDA-Public Use
  Company Number: IN-SUN PHARMACEUTICAL INDUSTRIES LTD-2022R1-362099

PATIENT
  Age: 47 Year
  Sex: Male

DRUGS (9)
  1. AMPHOTERICIN B [Suspect]
     Active Substance: AMPHOTERICIN B
     Indication: Pseudomonas infection
     Dosage: UNK
     Route: 065
  2. AMPHOTERICIN B [Suspect]
     Active Substance: AMPHOTERICIN B
     Indication: Infection
  3. CLINDAMYCIN [Suspect]
     Active Substance: CLINDAMYCIN
     Indication: Infection
     Dosage: UNK
     Route: 065
  4. CLINDAMYCIN [Suspect]
     Active Substance: CLINDAMYCIN
     Indication: Pseudomonas infection
  5. MEROPENEM [Suspect]
     Active Substance: MEROPENEM
     Indication: Pseudomonas infection
     Dosage: UNK
     Route: 065
  6. MEROPENEM [Suspect]
     Active Substance: MEROPENEM
     Indication: Infection
  7. POLYMYXIN B [Suspect]
     Active Substance: POLYMYXIN B
     Indication: Infection
     Dosage: UNK
     Route: 065
  8. POSACONAZOLE [Suspect]
     Active Substance: POSACONAZOLE
     Indication: Infection
     Dosage: UNK
     Route: 065
  9. POSACONAZOLE [Suspect]
     Active Substance: POSACONAZOLE
     Indication: Pseudomonas infection

REACTIONS (1)
  - Condition aggravated [Unknown]
